FAERS Safety Report 17039347 (Version 1)
Quarter: 2019Q4

REPORT INFORMATION
  Report Type: Spontaneous
  Country: CA (occurrence: CA)
  Receive Date: 20191115
  Receipt Date: 20191115
  Transmission Date: 20200122
  Serious: Yes (Hospitalization, Other)
  Sender: FDA-Public Use
  Company Number: CA-009507513-1911CAN002161

PATIENT
  Age: 61 Year
  Sex: Female

DRUGS (32)
  1. DIPHENHYDRAMINE HYDROCHLORIDE. [Suspect]
     Active Substance: DIPHENHYDRAMINE HYDROCHLORIDE
     Indication: PREMEDICATION
     Dosage: 50.0 MILLIGRAM, 1 EVERY 1 DAY
     Route: 048
  2. RITUXAN [Suspect]
     Active Substance: RITUXIMAB
     Indication: RHEUMATOID ARTHRITIS
     Dosage: UNK
     Route: 065
  3. ELTROXIN [Concomitant]
     Active Substance: LEVOTHYROXINE
     Route: 065
  4. LYRICA [Concomitant]
     Active Substance: PREGABALIN
     Route: 065
  5. PANTOPRAZOLE SODIUM. [Concomitant]
     Active Substance: PANTOPRAZOLE SODIUM
     Route: 065
  6. TYLENOL [Concomitant]
     Active Substance: ACETAMINOPHEN
     Route: 065
  7. DIAMICRON [Suspect]
     Active Substance: GLICLAZIDE
     Indication: DIABETES MELLITUS
     Route: 065
  8. METHYLPREDNISOLONE SODIUM SUCCINATE. [Suspect]
     Active Substance: METHYLPREDNISOLONE SODIUM SUCCINATE
     Indication: PREMEDICATION
     Dosage: 100.0 MILLIGRAM, ONE EVERY DAY
     Route: 042
  9. MORPHINE [Suspect]
     Active Substance: MORPHINE
     Indication: PRODUCT USED FOR UNKNOWN INDICATION
     Route: 065
  10. DOMPERIDONE [Concomitant]
     Active Substance: DOMPERIDONE
     Route: 065
  11. EZETROL [Concomitant]
     Active Substance: EZETIMIBE
     Route: 065
  12. AMLODIPINE [Suspect]
     Active Substance: AMLODIPINE BESYLATE
     Indication: PRODUCT USED FOR UNKNOWN INDICATION
     Route: 065
  13. GRAVOL [Suspect]
     Active Substance: DIMENHYDRINATE
     Indication: PREMEDICATION
     Dosage: 50.0 MILLIGRAM
     Route: 065
  14. MORPHINE SULFATE. [Suspect]
     Active Substance: MORPHINE SULFATE
     Indication: PRODUCT USED FOR UNKNOWN INDICATION
     Dosage: DOSAGE FORM: LIQUID INTRAMUSCULAR
     Route: 065
  15. RITUXAN [Suspect]
     Active Substance: RITUXIMAB
     Indication: SJOGREN^S SYNDROME
     Dosage: 1000.0 MILLIGRAM
     Route: 042
  16. SYNTHROID [Suspect]
     Active Substance: LEVOTHYROXINE SODIUM
     Indication: PRODUCT USED FOR UNKNOWN INDICATION
     Route: 065
  17. ZOFRAN [Suspect]
     Active Substance: ONDANSETRON HYDROCHLORIDE
     Indication: PRODUCT USED FOR UNKNOWN INDICATION
     Route: 065
  18. PRINIVIL [Suspect]
     Active Substance: LISINOPRIL
     Indication: HYPERTENSION
     Route: 048
  19. DIAMICRON [Suspect]
     Active Substance: GLICLAZIDE
     Indication: BLOOD PRESSURE MEASUREMENT
  20. APO-HYDRO [Concomitant]
     Active Substance: HYDROCHLOROTHIAZIDE
     Route: 065
  21. JANUVIA [Concomitant]
     Active Substance: SITAGLIPTIN PHOSPHATE
     Route: 065
  22. ROSUVASTATIN. [Concomitant]
     Active Substance: ROSUVASTATIN
     Route: 065
  23. ALTACE [Suspect]
     Active Substance: RAMIPRIL
     Indication: PRODUCT USED FOR UNKNOWN INDICATION
     Route: 065
  24. ATACAND [Suspect]
     Active Substance: CANDESARTAN CILEXETIL
     Indication: HYPERTENSION
     Route: 065
  25. LANTUS [Concomitant]
     Active Substance: INSULIN GLARGINE
     Dosage: DOSAGE FORM: SOLUTION SUBCUTANEOS
     Route: 065
  26. PREDNISONE. [Suspect]
     Active Substance: PREDNISONE
     Indication: PRODUCT USED FOR UNKNOWN INDICATION
     Route: 065
  27. DEPO-MEDROL [Concomitant]
     Active Substance: METHYLPREDNISOLONE ACETATE
     Dosage: DOSAGE FORM: SUSPENSION INTRA-ARTICULAR
     Route: 065
  28. LEVEMIR [Concomitant]
     Active Substance: INSULIN DETEMIR
     Dosage: DOSAGE FORM: SOLUTION SUBCUTANEOUS
     Route: 065
  29. ACETAMINOPHEN. [Suspect]
     Active Substance: ACETAMINOPHEN
     Indication: PRODUCT USED FOR UNKNOWN INDICATION
     Dosage: 650.0 MILLIGRAM, 1 EVERY 1 DAY
     Route: 048
  30. NEXIUM I.V. [Suspect]
     Active Substance: ESOMEPRAZOLE SODIUM
     Indication: PRODUCT USED FOR UNKNOWN INDICATION
     Route: 065
  31. STEMETIL (PROCHLORPERAZINE MALEATE) [Suspect]
     Active Substance: PROCHLORPERAZINE MALEATE
     Indication: VOMITING
     Route: 065
  32. HUMALOG [Concomitant]
     Active Substance: INSULIN LISPRO
     Route: 065

REACTIONS (15)
  - Arterial occlusive disease [Not Recovered/Not Resolved]
  - Blood pressure increased [Not Recovered/Not Resolved]
  - Sinusitis [Not Recovered/Not Resolved]
  - Rheumatoid arthritis [Not Recovered/Not Resolved]
  - Palpitations [Not Recovered/Not Resolved]
  - Gangrene [Not Recovered/Not Resolved]
  - Angina pectoris [Not Recovered/Not Resolved]
  - Arthritis [Not Recovered/Not Resolved]
  - Fatigue [Not Recovered/Not Resolved]
  - Headache [Not Recovered/Not Resolved]
  - Cataract [Not Recovered/Not Resolved]
  - Gastric disorder [Not Recovered/Not Resolved]
  - Chest discomfort [Not Recovered/Not Resolved]
  - Asthenia [Not Recovered/Not Resolved]
  - Nausea [Not Recovered/Not Resolved]
